FAERS Safety Report 12720129 (Version 2)
Quarter: 2016Q3

REPORT INFORMATION
  Report Type: Spontaneous
  Country: US (occurrence: US)
  Receive Date: 20160907
  Receipt Date: 20160913
  Transmission Date: 20161109
  Serious: No
  Sender: FDA-Public Use
  Company Number: US-PFIZER INC-2016413390

PATIENT
  Age: 69 Year
  Sex: Male
  Weight: 108.84 kg

DRUGS (4)
  1. TAMOXIFEN [Concomitant]
     Active Substance: TAMOXIFEN
     Indication: BREAST CANCER
     Dosage: UNK
  2. GABAPENTIN. [Suspect]
     Active Substance: GABAPENTIN
     Indication: DIABETIC NEUROPATHY
     Dosage: 3600 MG, DAILY (600 MG, 6 TABS A DAY)
     Route: 048
  3. CELEBREX [Concomitant]
     Active Substance: CELECOXIB
     Dosage: 200 MG, 2X/DAY
  4. TAMOXIFEN [Concomitant]
     Active Substance: TAMOXIFEN
     Indication: PROSTATE CANCER

REACTIONS (4)
  - Discomfort [Not Recovered/Not Resolved]
  - Weight decreased [Unknown]
  - Drug ineffective for unapproved indication [Not Recovered/Not Resolved]
  - Pain [Unknown]
